FAERS Safety Report 17716107 (Version 5)
Quarter: 2023Q1

REPORT INFORMATION
  Report Type: Other
  Country: CA (occurrence: None)
  Receive Date: 20200428
  Receipt Date: 20230308
  Transmission Date: 20230417
  Serious: Yes (Other)
  Sender: FDA-Public Use
  Company Number: CA-ROCHE-2491983

PATIENT
  Age: 44 Year
  Sex: Male

DRUGS (5)
  1. OCREVUS [Suspect]
     Active Substance: OCRELIZUMAB
     Indication: Relapsing-remitting multiple sclerosis
     Dosage: 300 MG AT DAY 0 AND 14, THEN 600 MG EVERY 6 MONTH
     Route: 042
     Dates: start: 20171023
  2. OCREVUS [Suspect]
     Active Substance: OCRELIZUMAB
     Dosage: 300 MG AT DAY 0 AND 14, THEN 600 MG EVERY 6 MONTH
     Route: 043
     Dates: start: 20171023
  3. HERBALS\TURMERIC [Concomitant]
     Active Substance: HERBALS\TURMERIC
  4. OMEGA 3 [Concomitant]
     Active Substance: CAPSAICIN
  5. VITAMIN C [Concomitant]
     Active Substance: ASCORBIC ACID

REACTIONS (5)
  - Appendicitis [Recovered/Resolved with Sequelae]
  - Hernia [Not Recovered/Not Resolved]
  - Nasopharyngitis [Recovered/Resolved]
  - Hernia pain [Not Recovered/Not Resolved]
  - Appendix disorder [Recovered/Resolved]

NARRATIVE: CASE EVENT DATE: 20190701
